FAERS Safety Report 24806309 (Version 1)
Quarter: 2025Q1

REPORT INFORMATION
  Report Type: Spontaneous
  Country: US (occurrence: US)
  Receive Date: 20250103
  Receipt Date: 20250103
  Transmission Date: 20250408
  Serious: No
  Sender: NOVO NORDISK
  Company Number: US-NOVOPROD-1313849

PATIENT
  Sex: Male

DRUGS (1)
  1. RIVFLOZA [Suspect]
     Active Substance: NEDOSIRAN SODIUM
     Indication: Product used for unknown indication
     Route: 058

REACTIONS (1)
  - Rash [Unknown]
